FAERS Safety Report 19497251 (Version 1)
Quarter: 2021Q3

REPORT INFORMATION
  Report Type: Spontaneous
  Country: JP (occurrence: JP)
  Receive Date: 20210706
  Receipt Date: 20210706
  Transmission Date: 20211014
  Serious: Yes (Other)
  Sender: FDA-Public Use
  Company Number: JP-ACCORD-230035

PATIENT
  Age: 49 Year
  Sex: Female

DRUGS (3)
  1. TOCOPHEROL/TOCOPHERYL ACETATE/TOCOPHERYL ACID SUCCINATE/TOCOPHERYL NICOTINATE [Concomitant]
     Active Substance: TOCOPHEROL
     Indication: HYPERTRIGLYCERIDAEMIA
     Dates: start: 201803, end: 201809
  2. TAMOXIFEN [Concomitant]
     Active Substance: TAMOXIFEN
     Indication: BREAST CANCER
     Dates: start: 201808
  3. ROSUVASTATIN. [Suspect]
     Active Substance: ROSUVASTATIN
     Indication: DYSLIPIDAEMIA
     Dates: start: 201603, end: 201809

REACTIONS (2)
  - Dehydration [Recovering/Resolving]
  - Renal impairment [Recovering/Resolving]

NARRATIVE: CASE EVENT DATE: 201809
